FAERS Safety Report 5677488-1 (Version None)
Quarter: 2008Q1

REPORT INFORMATION
  Report Type: 
  Country: None (occurrence: None)
  Receive Date: 20080324
  Receipt Date: 20080312
  Transmission Date: 20080703
  Serious: Yes (Other)
  Sender: FDA-Public Use
  Company Number: US-PFIZER INC-2008023146

PATIENT
  Sex: Female

DRUGS (2)
  1. XALATAN [Suspect]
  2. XAL-EASE [Suspect]

REACTIONS (3)
  - CATARACT OPERATION [None]
  - EYE LASER SURGERY [None]
  - MEDICAL DEVICE COMPLICATION [None]
